FAERS Safety Report 4845201-3 (Version None)
Quarter: 2005Q4

REPORT INFORMATION
  Report Type: 
  Country: None (occurrence: None)
  Receive Date: 20051125
  Receipt Date: 20051115
  Transmission Date: 20060501
  Serious: Yes (Other)
  Sender: FDA-Public Use
  Company Number: 2005133878

PATIENT
  Age: 78 Year
  Sex: Female
  Weight: 86.1834 kg

DRUGS (6)
  1. CELEBREX [Suspect]
     Indication: POLYMYALGIA RHEUMATICA
     Dosage: 200 MG (200 MG 1 IN 1 D)
     Dates: start: 20050201, end: 20050901
  2. NEURONTIN [Suspect]
  3. GABAPENTIN [Suspect]
     Indication: POLYMYALGIA RHEUMATICA
     Dosage: 900 MG (300 MG 3 IN 1 D)
     Dates: start: 20050128, end: 20050101
  4. AMBIEN [Concomitant]
  5. CORTICOSTEROIDS(CORTICOSTEROIDS) [Concomitant]
  6. ALL OTHER THERAPEUTIC PRODUCTS [Concomitant]

REACTIONS (38)
  - ANOREXIA [None]
  - APRAXIA [None]
  - ARTHRALGIA [None]
  - BONE PAIN [None]
  - CATARACT OPERATION [None]
  - CHEST DISCOMFORT [None]
  - CONDITION AGGRAVATED [None]
  - CONSTIPATION [None]
  - DEPRESSION [None]
  - DIFFICULTY IN WALKING [None]
  - DIZZINESS [None]
  - DRUG INEFFECTIVE [None]
  - DYSGEUSIA [None]
  - DYSGRAPHIA [None]
  - DYSPEPSIA [None]
  - DYSPNOEA [None]
  - DYSSTASIA [None]
  - DYSURIA [None]
  - FALL [None]
  - FATIGUE [None]
  - FEELING ABNORMAL [None]
  - FINGER DEFORMITY [None]
  - FLUID RETENTION [None]
  - HYPOKINESIA [None]
  - INDURATION [None]
  - MALAISE [None]
  - MUSCULAR WEAKNESS [None]
  - OSTEOPOROSIS [None]
  - PAIN [None]
  - PAIN IN EXTREMITY [None]
  - PALPITATIONS [None]
  - PHARMACEUTICAL PRODUCT COMPLAINT [None]
  - POSTURE ABNORMAL [None]
  - RASH ERYTHEMATOUS [None]
  - RED BLOOD CELL SEDIMENTATION RATE INCREASED [None]
  - SENSATION OF HEAVINESS [None]
  - URINARY TRACT INFECTION [None]
  - WEIGHT INCREASED [None]
